FAERS Safety Report 4329751-4 (Version None)
Quarter: 2004Q2

REPORT INFORMATION
  Report Type: 
  Country: None (occurrence: None)
  Receive Date: 20040401
  Receipt Date: 20040213
  Transmission Date: 20050107
  Serious: Yes (Death)
  Sender: FDA-Public Use
  Company Number: FR-GLAXOSMITHKLINE-B0323327A

PATIENT
  Age: 52 Year
  Sex: Male

DRUGS (6)
  1. AMOXICILLIN [Suspect]
     Indication: ODYNOPHAGIA
     Dosage: 3G PER DAY
     Route: 048
     Dates: start: 20040128, end: 20040128
  2. LOCABIOTAL [Suspect]
     Indication: ODYNOPHAGIA
     Route: 061
     Dates: start: 20040128, end: 20040128
  3. OROPIVALONE [Suspect]
     Indication: ODYNOPHAGIA
     Route: 061
     Dates: start: 20040128, end: 20040128
  4. MONOTILDIEM LP [Concomitant]
     Dosage: 1CAP PER DAY
     Route: 048
  5. ASPEGIC 325 [Concomitant]
     Dosage: 100MG PER DAY
     Route: 048
  6. ZOCOR [Concomitant]
     Dosage: 1TAB PER DAY
     Route: 048

REACTIONS (7)
  - ANOXIA [None]
  - BRONCHOSPASM [None]
  - CARDIO-RESPIRATORY ARREST [None]
  - CYANOSIS [None]
  - DYSPNOEA [None]
  - LARYNGEAL OEDEMA [None]
  - SHOCK [None]
